FAERS Safety Report 6273815-5 (Version None)
Quarter: 2009Q3

REPORT INFORMATION
  Report Type: 
  Country: None (occurrence: None)
  Receive Date: 20090720
  Receipt Date: 20090714
  Transmission Date: 20100115
  Serious: Yes (Other)
  Sender: FDA-Public Use
  Company Number: D0062048A

PATIENT
  Sex: Female

DRUGS (3)
  1. SULTANOL [Suspect]
     Indication: ASTHMA
     Route: 055
  2. PREDNISOLONE [Suspect]
     Route: 065
  3. BRICANYL [Suspect]
     Route: 058

REACTIONS (2)
  - ASTHMA [None]
  - DRUG INEFFECTIVE [None]
